FAERS Safety Report 17677993 (Version 1)
Quarter: 2020Q2

REPORT INFORMATION
  Report Type: Report from Study
  Country: US (occurrence: US)
  Receive Date: 20200416
  Receipt Date: 20200416
  Transmission Date: 20200714
  Serious: Yes (Hospitalization, Other)
  Sender: FDA-Public Use
  Company Number: US-BRISTOL-MYERS SQUIBB COMPANY-BMS-2020-021566

PATIENT
  Age: 74 Year
  Sex: Female

DRUGS (1)
  1. APIXABAN [Suspect]
     Active Substance: APIXABAN
     Indication: CEREBROVASCULAR ACCIDENT PROPHYLAXIS
     Dosage: 5 MILLIGRAM, BID
     Route: 065
     Dates: start: 20190402, end: 20200226

REACTIONS (6)
  - Dermatitis allergic [Not Recovered/Not Resolved]
  - Rash pustular [Unknown]
  - Thoracic vertebral fracture [Unknown]
  - Pulmonary sepsis [Unknown]
  - Skin exfoliation [Unknown]
  - Fluid overload [Unknown]

NARRATIVE: CASE EVENT DATE: 20191210
